FAERS Safety Report 7630483-5 (Version None)
Quarter: 2011Q3

REPORT INFORMATION
  Report Type: 
  Country: None (occurrence: None)
  Receive Date: 20110722
  Receipt Date: 20110711
  Transmission Date: 20111222
  Serious: Yes (Hospitalization, Other)
  Sender: FDA-Public Use
  Company Number: US-ELI_LILLY_AND_COMPANY-US201007004450

PATIENT
  Sex: Female
  Weight: 103.86 kg

DRUGS (18)
  1. HUMALOG [Concomitant]
  2. PROTONIX [Concomitant]
  3. XOPENEX [Concomitant]
  4. LIPITOR [Concomitant]
  5. FORTEO [Suspect]
     Dosage: 20 UG, QD
  6. SINGULAIR [Concomitant]
  7. FORTEO [Suspect]
     Indication: OSTEOPOROSIS
     Dosage: 20 UG, QD
     Route: 065
     Dates: end: 20100601
  8. LANTUS [Concomitant]
  9. POTASSIUM [Concomitant]
  10. ALBUTEROL SULFATE AUTOHALER [Concomitant]
  11. ASPIRIN [Concomitant]
  12. FORTEO [Suspect]
     Dosage: 20 UG, QD
  13. CYMBALTA [Concomitant]
  14. AMIODARONE HCL [Concomitant]
  15. LYRICA [Concomitant]
  16. ASCORBIC ACID [Concomitant]
  17. LASIX [Concomitant]
  18. METOPROLOL TARTRATE [Concomitant]

REACTIONS (8)
  - FRACTURE DELAYED UNION [None]
  - FEMUR FRACTURE [None]
  - CORONARY ARTERY BYPASS [None]
  - FALL [None]
  - MYOCARDIAL INFARCTION [None]
  - OPEN FRACTURE [None]
  - CARDIAC PROCEDURE COMPLICATION [None]
  - MEDICAL DEVICE PAIN [None]
